FAERS Safety Report 6264054-2 (Version None)
Quarter: 2009Q3

REPORT INFORMATION
  Report Type: 
  Country: None (occurrence: None)
  Receive Date: 20090710
  Receipt Date: 20090625
  Transmission Date: 20100115
  Serious: Yes (Hospitalization, Other)
  Sender: FDA-Public Use
  Company Number: PHHY2009FR25322

PATIENT
  Age: 75 Year
  Sex: Male

DRUGS (1)
  1. EXELON [Suspect]
     Indication: DEMENTIA
     Dosage: 9.5 MG PER 24 HOURS
     Route: 062

REACTIONS (9)
  - CONTUSION [None]
  - DEMENTIA [None]
  - DRUG WITHDRAWAL SYNDROME [None]
  - FACE INJURY [None]
  - FALL [None]
  - HALLUCINATION [None]
  - SUICIDE ATTEMPT [None]
  - THINKING ABNORMAL [None]
  - WEIGHT DECREASED [None]
